FAERS Safety Report 8645799 (Version 4)
Quarter: 2013Q2

REPORT INFORMATION
  Report Type: Spontaneous
  Country: US (occurrence: US)
  Receive Date: 20120702
  Receipt Date: 20130507
  Transmission Date: 20140414
  Serious: Yes (Life-Threatening, Other)
  Sender: FDA-Public Use
  Company Number: US-ASTRAZENECA-2012SE30572

PATIENT
  Age: 48 Year
  Sex: Male

DRUGS (3)
  1. CRESTOR [Suspect]
     Route: 048
  2. PLAVIX [Concomitant]
  3. LISINOPRIL [Concomitant]

REACTIONS (8)
  - Apparent death [Unknown]
  - Myocardial infarction [Unknown]
  - Cardiac failure [Unknown]
  - Arterial occlusive disease [Unknown]
  - Malaise [Unknown]
  - Feeling abnormal [Unknown]
  - Cardiac disorder [Unknown]
  - Intentional drug misuse [Unknown]
